FAERS Safety Report 9574986 (Version 1)
Quarter: 2013Q4

REPORT INFORMATION
  Report Type: Report from Study
  Country: DE (occurrence: DE)
  Receive Date: 20131001
  Receipt Date: 20131001
  Transmission Date: 20140711
  Serious: Yes (Hospitalization)
  Sender: FDA-Public Use
  Company Number: DE-CELGENEUS-062-20785-13093170

PATIENT
  Age: 60 Year
  Sex: Male

DRUGS (1)
  1. THALIDOMIDE [Suspect]
     Indication: PLASMA CELL MYELOMA
     Route: 048
     Dates: start: 20100928

REACTIONS (5)
  - Multiple sclerosis [Recovered/Resolved with Sequelae]
  - Amnestic disorder [Recovered/Resolved with Sequelae]
  - Headache [Recovered/Resolved with Sequelae]
  - Transient ischaemic attack [Recovered/Resolved with Sequelae]
  - Gastroenteritis [Recovered/Resolved with Sequelae]
